FAERS Safety Report 13161127 (Version 1)
Quarter: 2017Q1

REPORT INFORMATION
  Report Type: Spontaneous
  Country: CA (occurrence: CA)
  Receive Date: 20170130
  Receipt Date: 20170130
  Transmission Date: 20170428
  Serious: Yes (Other)
  Sender: FDA-Public Use
  Company Number: CA-TEVA-734096ACC

PATIENT
  Age: 25 Year
  Sex: Female
  Weight: 50 kg

DRUGS (2)
  1. ALESSE 28 [Concomitant]
     Active Substance: ETHINYL ESTRADIOL\LEVONORGESTREL
  2. DOXYCYCLINE CAPSULES [Suspect]
     Active Substance: DOXYCYCLINE
     Indication: GINGIVITIS
     Dosage: 200 MILLIGRAM DAILY;
     Route: 048

REACTIONS (1)
  - Oral candidiasis [Recovered/Resolved]
